FAERS Safety Report 8026167-4 (Version None)
Quarter: 2012Q1

REPORT INFORMATION
  Report Type: 
  Country: None (occurrence: None)
  Receive Date: 20120105
  Receipt Date: 20110708
  Transmission Date: 20120608
  Serious: No
  Sender: FDA-Public Use
  Company Number: US-ABBOTT-11P-163-0838761-00

PATIENT
  Age: 42 Year
  Sex: Male
  Weight: 84.444 kg

DRUGS (3)
  1. SYNTHROID [Suspect]
     Indication: HYPOTHYROIDISM
     Route: 048
     Dates: start: 20101101
  2. GLUCOSAMINE CHONDROITIN [Concomitant]
     Indication: OSTEOARTHRITIS
  3. CLARITIN [Concomitant]
     Indication: HYPERSENSITIVITY

REACTIONS (1)
  - HYPERTRICHOSIS [None]
